FAERS Safety Report 9266175 (Version 1)
Quarter: 2013Q2

REPORT INFORMATION
  Report Type: Spontaneous
  Country: US (occurrence: US)
  Receive Date: 20130502
  Receipt Date: 20130502
  Transmission Date: 20140414
  Serious: Yes (Other)
  Sender: FDA-Public Use
  Company Number: US-GE HEALTHCARE MEDICAL DIAGNOSTICS-VISP-PR-1304S-0583

PATIENT
  Age: 80 Year
  Sex: Female
  Weight: 62.2 kg

DRUGS (2)
  1. VISIPAQUE [Suspect]
     Indication: AORTIC DISSECTION
     Route: 042
     Dates: start: 20130426, end: 20130426
  2. VISIPAQUE [Suspect]
     Indication: DIAGNOSTIC PROCEDURE

REACTIONS (1)
  - Upper-airway cough syndrome [Recovered/Resolved]
